FAERS Safety Report 6862614-9 (Version None)
Quarter: 2010Q3

REPORT INFORMATION
  Report Type: 
  Country: None (occurrence: None)
  Receive Date: 20100721
  Receipt Date: 20100617
  Transmission Date: 20110219
  Serious: Yes (Other)
  Sender: FDA-Public Use
  Company Number: US-BAYER-201025690NA

PATIENT
  Age: 83 Year
  Sex: Female

DRUGS (1)
  1. BETAPACE [Suspect]
     Indication: ARRHYTHMIA

REACTIONS (1)
  - ARRHYTHMIA [None]
